FAERS Safety Report 22088503 (Version 2)
Quarter: 2025Q2

REPORT INFORMATION
  Report Type: Spontaneous
  Country: RO (occurrence: RO)
  Receive Date: 20230313
  Receipt Date: 20250602
  Transmission Date: 20250717
  Serious: Yes (Other)
  Sender: MYLAN
  Company Number: RO-MYLANLABS-2023M1023910

PATIENT
  Sex: Male

DRUGS (8)
  1. VENLAFAXINE [Suspect]
     Active Substance: VENLAFAXINE HYDROCHLORIDE
     Indication: Depression
     Dosage: 225 MILLIGRAM, QD(1 CAP 150MG  PLUS 1 CAPS 75 MG IN MORNING)
  2. VENLAFAXINE [Suspect]
     Active Substance: VENLAFAXINE HYDROCHLORIDE
     Dosage: 225 MILLIGRAM, QD(1 CAP 150MG  PLUS 1 CAPS 75 MG IN MORNING)
     Route: 065
  3. VENLAFAXINE [Suspect]
     Active Substance: VENLAFAXINE HYDROCHLORIDE
     Dosage: 225 MILLIGRAM, QD(1 CAP 150MG  PLUS 1 CAPS 75 MG IN MORNING)
     Route: 065
  4. VENLAFAXINE [Suspect]
     Active Substance: VENLAFAXINE HYDROCHLORIDE
     Dosage: 225 MILLIGRAM, QD(1 CAP 150MG  PLUS 1 CAPS 75 MG IN MORNING)
  5. VENLAFAXINE HYDROCHLORIDE [Suspect]
     Active Substance: VENLAFAXINE HYDROCHLORIDE
     Indication: Depression
     Dosage: 225 MILLIGRAM, QD (75 MG 3 CAPSULE A DAY IN THE MORNING)
     Dates: start: 20230201, end: 20230223
  6. VENLAFAXINE HYDROCHLORIDE [Suspect]
     Active Substance: VENLAFAXINE HYDROCHLORIDE
     Dosage: 225 MILLIGRAM, QD (75 MG 3 CAPSULE A DAY IN THE MORNING)
     Route: 065
     Dates: start: 20230201, end: 20230223
  7. VENLAFAXINE HYDROCHLORIDE [Suspect]
     Active Substance: VENLAFAXINE HYDROCHLORIDE
     Dosage: 225 MILLIGRAM, QD (75 MG 3 CAPSULE A DAY IN THE MORNING)
     Route: 065
     Dates: start: 20230201, end: 20230223
  8. VENLAFAXINE HYDROCHLORIDE [Suspect]
     Active Substance: VENLAFAXINE HYDROCHLORIDE
     Dosage: 225 MILLIGRAM, QD (75 MG 3 CAPSULE A DAY IN THE MORNING)
     Dates: start: 20230201, end: 20230223

REACTIONS (5)
  - Anxiety [Recovered/Resolved]
  - Tension [Recovered/Resolved]
  - Dysphoria [Recovered/Resolved]
  - Headache [Recovered/Resolved]
  - Insomnia [Recovered/Resolved]

NARRATIVE: CASE EVENT DATE: 20230201
